FAERS Safety Report 21736709 (Version 1)
Quarter: 2022Q4

REPORT INFORMATION
  Report Type: Report from Study
  Country: US (occurrence: US)
  Receive Date: 20221216
  Receipt Date: 20221216
  Transmission Date: 20230112
  Serious: Yes (Life-Threatening, Hospitalization, Other)
  Sender: FDA-Public Use
  Company Number: US-BRISTOL-MYERS SQUIBB COMPANY-2022-151866

PATIENT
  Age: 67 Year
  Sex: Male
  Weight: 90.72 kg

DRUGS (1)
  1. ORENCIA [Suspect]
     Active Substance: ABATACEPT
     Indication: Rheumatoid arthritis
     Route: 058

REACTIONS (10)
  - Road traffic accident [Unknown]
  - Open fracture [Unknown]
  - Cerebral haemorrhage [Unknown]
  - Pelvic fracture [Unknown]
  - Spinal fracture [Unknown]
  - Haematoma [Unknown]
  - Hemiplegia [Unknown]
  - Facial bones fracture [Unknown]
  - Concussion [Unknown]
  - Head injury [Unknown]

NARRATIVE: CASE EVENT DATE: 20221001
